FAERS Safety Report 15280739 (Version 1)
Quarter: 2018Q3

REPORT INFORMATION
  Report Type: Spontaneous
  Country: SI (occurrence: SI)
  Receive Date: 20180815
  Receipt Date: 20180815
  Transmission Date: 20181010
  Serious: Yes (Other)
  Sender: FDA-Public Use
  Company Number: PHHY2018SI073854

PATIENT
  Age: 97 Year
  Sex: Female

DRUGS (1)
  1. ELDERIN [Suspect]
     Active Substance: ETODOLAC
     Indication: FRACTURE PAIN
     Dosage: 1 DF, QD (2X600MG)
     Route: 048
     Dates: start: 20180511, end: 20180519

REACTIONS (2)
  - Hallucination, visual [Not Recovered/Not Resolved]
  - Gastrointestinal haemorrhage [Unknown]

NARRATIVE: CASE EVENT DATE: 20180519
